FAERS Safety Report 20107366 (Version 1)
Quarter: 2021Q4

REPORT INFORMATION
  Report Type: Spontaneous
  Country: US (occurrence: US)
  Receive Date: 20211124
  Receipt Date: 20211124
  Transmission Date: 20220303
  Serious: No
  Sender: FDA-Public Use
  Company Number: US-APOTEX-2021AP012705

PATIENT
  Sex: Female

DRUGS (5)
  1. NICOTINE TRANSDERMAL SYSTEM [Suspect]
     Active Substance: NICOTINE
     Indication: Smoking cessation therapy
     Dosage: 7 MILLIGRAM, QD
     Route: 065
     Dates: start: 20210328
  2. NICOTINE TRANSDERMAL SYSTEM [Suspect]
     Active Substance: NICOTINE
     Dosage: UNK; LOWER DOSES
     Route: 065
  3. ATORVASTATIN [Concomitant]
     Active Substance: ATORVASTATIN
     Indication: Blood cholesterol
     Dosage: 1 DOSAGE FORM, QD; STARTED 5 YEARS AGO
     Route: 065
  4. VITAMIN D3 [Concomitant]
     Active Substance: CHOLECALCIFEROL
     Indication: Bone disorder
     Dosage: 1 DOSAGE FORM, QD; WITH MEALS
     Route: 065
  5. VITAMIN D3 [Concomitant]
     Active Substance: CHOLECALCIFEROL
     Indication: Pigmentation disorder

REACTIONS (8)
  - Swollen tongue [Recovered/Resolved]
  - Exposure to tobacco [Unknown]
  - Nervousness [Recovered/Resolved]
  - Glossitis [Recovered/Resolved]
  - Ageusia [Recovered/Resolved]
  - Tobacco user [Recovered/Resolved]
  - Product use issue [Unknown]
  - Overdose [Unknown]
